FAERS Safety Report 10057854 (Version 2)
Quarter: 2014Q2

REPORT INFORMATION
  Report Type: Spontaneous
  Country: ZA (occurrence: ZA)
  Receive Date: 20140404
  Receipt Date: 20140409
  Transmission Date: 20141212
  Serious: Yes (Death, Other)
  Sender: FDA-Public Use
  Company Number: ZA-009507513-1404ZAF002315

PATIENT
  Sex: Male

DRUGS (3)
  1. CANCIDAS 50MG [Suspect]
     Indication: CHOLECYSTITIS INFECTIVE
     Dosage: 50 MG DAILY
     Dates: end: 20140325
  2. VFEND [Concomitant]
     Indication: CHOLECYSTITIS INFECTIVE
     Dosage: UNK
  3. FUNGIZONE [Concomitant]
     Indication: CHOLECYSTITIS INFECTIVE

REACTIONS (1)
  - Multi-organ failure [Fatal]
